FAERS Safety Report 8580131-5 (Version None)
Quarter: 2012Q3

REPORT INFORMATION
  Report Type: 
  Country: None (occurrence: None)
  Receive Date: 20120808
  Receipt Date: 20120806
  Transmission Date: 20120928
  Serious: Yes (Other)
  Sender: FDA-Public Use
  Company Number: ES-PFIZER INC-2012183489

PATIENT
  Age: 30 Year
  Sex: Female

DRUGS (1)
  1. ALPRAZOLAM [Suspect]
     Indication: EMETOPHOBIA
     Dosage: MINIMUM 4 MG, AS NEEDED
     Route: 048
     Dates: start: 20050101

REACTIONS (3)
  - HYPOACUSIS [None]
  - WEIGHT DECREASED [None]
  - OFF LABEL USE [None]
